FAERS Safety Report 17201161 (Version 1)
Quarter: 2019Q4

REPORT INFORMATION
  Report Type: Spontaneous
  Country: US (occurrence: US)
  Receive Date: 20191203
  Receipt Date: 20191203
  Transmission Date: 20200122
  Serious: Yes (Other)
  Sender: FDA-Public Use
  Company Number: None

PATIENT
  Age: 35 Month
  Sex: Male

DRUGS (2)
  1. ALPROLIX [Suspect]
     Active Substance: EFTRENONACOG ALFA
     Dosage: ?          OTHER STRENGTH:2000 UNIT;?
     Route: 042
     Dates: start: 201710
  2. ALPROLIX [Concomitant]
     Active Substance: EFTRENONACOG ALFA

REACTIONS (2)
  - Influenza [None]
  - Product dose omission [None]

NARRATIVE: CASE EVENT DATE: 20191118
